FAERS Safety Report 10015334 (Version 2)
Quarter: 2014Q2

REPORT INFORMATION
  Report Type: Spontaneous
  Country: US (occurrence: US)
  Receive Date: 20140317
  Receipt Date: 20140501
  Transmission Date: 20141212
  Serious: Yes (Hospitalization)
  Sender: FDA-Public Use
  Company Number: US-SA-2014SA030939

PATIENT
  Age: 70 Year
  Sex: Female

DRUGS (11)
  1. LANTUS SOLOSTAR [Suspect]
     Indication: TYPE 2 DIABETES MELLITUS
     Dosage: DOSE:34 UNIT(S)
     Route: 065
  2. LANTUS SOLOSTAR [Suspect]
     Indication: TYPE 2 DIABETES MELLITUS
     Dosage: DOSE:44 UNIT(S)
     Route: 065
  3. LANTUS SOLOSTAR [Suspect]
     Indication: TYPE 2 DIABETES MELLITUS
     Dosage: DOSE:34 UNIT(S)
     Route: 065
  4. SOLOSTAR [Concomitant]
  5. SOLOSTAR [Concomitant]
  6. ASPIRIN [Concomitant]
     Route: 048
     Dates: start: 20090626
  7. DIABETA [Concomitant]
     Dosage: WHEN EATINF CARBOHYDRATES
  8. PRINZIDE [Concomitant]
     Route: 048
  9. ZESTORETIC [Concomitant]
     Route: 048
  10. GLUCOPHAGE [Concomitant]
     Route: 048
  11. ZOCOR [Concomitant]
     Route: 048

REACTIONS (3)
  - Pneumonia [Recovered/Resolved]
  - Influenza [Recovered/Resolved]
  - Blood glucose increased [Unknown]
